FAERS Safety Report 16706202 (Version 1)
Quarter: 2019Q3

REPORT INFORMATION
  Report Type: Spontaneous
  Country: US (occurrence: US)
  Receive Date: 20190628
  Receipt Date: 20190628
  Transmission Date: 20191004
  Serious: Yes (Other)
  Sender: FDA-Public Use
  Company Number: None

PATIENT
  Age: 69 Year
  Sex: Female
  Weight: 90.72 kg

DRUGS (23)
  1. NEBULIZER [Concomitant]
     Active Substance: DEVICE
  2. COREG [Concomitant]
     Active Substance: CARVEDILOL
  3. MULTIVITAMIN [Concomitant]
     Active Substance: VITAMINS
  4. RESTEROL 30 [Concomitant]
  5. ALBUTEROL. [Concomitant]
     Active Substance: ALBUTEROL
  6. BUDESIMIDE [Concomitant]
  7. FLEXERIL 10 [Concomitant]
  8. NORVASC 5 [Concomitant]
  9. LOSARDIN 50 [Concomitant]
  10. OMEPRAZOLE. [Concomitant]
     Active Substance: OMEPRAZOLE
  11. TYLENOL ARTHRITIS PAIN [Concomitant]
     Active Substance: ACETAMINOPHEN
  12. VIT D [Concomitant]
     Active Substance: VITAMIN D NOS
  13. CALCIUM [Concomitant]
     Active Substance: CALCIUM
  14. OSTEO BIFLEX [Concomitant]
     Active Substance: CHONDROITIN SULFATE A\GLUCOSAMINE
  15. VITAMIN B12 [Concomitant]
     Active Substance: CYANOCOBALAMIN
  16. ANTIVERT [Concomitant]
     Active Substance: MECLIZINE HYDROCHLORIDE
  17. SYNTHROID 100MG [Concomitant]
  18. IMDUR 3% [Concomitant]
  19. BABY ASA [Concomitant]
     Active Substance: ASPIRIN
  20. ANORO ELLIPTA [Suspect]
     Active Substance: UMECLIDINIUM BROMIDE\VILANTEROL TRIFENATATE
     Indication: CHRONIC OBSTRUCTIVE PULMONARY DISEASE
     Dosage: DATE THE PERSON FIRST STARTED 7-5-19 ?DATE THE PERSON STOPPED 7-21-19
     Route: 048
  21. HYDROCODONE 10/325 [Concomitant]
     Active Substance: ACETAMINOPHEN\HYDROCODONE BITARTRATE
  22. GABAPENTIN 600 [Concomitant]
  23. VIT A [Concomitant]

REACTIONS (4)
  - Productive cough [None]
  - Joint swelling [None]
  - Peripheral swelling [None]
  - Gait disturbance [None]

NARRATIVE: CASE EVENT DATE: 20190503
